FAERS Safety Report 8583576-2 (Version None)
Quarter: 2012Q3

REPORT INFORMATION
  Report Type: 
  Country: None (occurrence: None)
  Receive Date: 20120809
  Receipt Date: 20120727
  Transmission Date: 20120928
  Serious: Yes (Hospitalization, Other)
  Sender: FDA-Public Use
  Company Number: JP-MYLANLABS-2012S1015534

PATIENT
  Age: 69 Year
  Sex: Male
  Weight: 50 kg

DRUGS (6)
  1. VINORELBINE TARTRATE [Suspect]
     Route: 041
     Dates: start: 20120515, end: 20120515
  2. VINORELBINE TARTRATE [Suspect]
     Indication: LUNG SQUAMOUS CELL CARCINOMA STAGE UNSPECIFIED
     Route: 041
     Dates: start: 20120417, end: 20120417
  3. VINORELBINE TARTRATE [Suspect]
     Route: 041
     Dates: start: 20120522, end: 20120522
  4. CARBOPLATIN [Suspect]
     Indication: LUNG SQUAMOUS CELL CARCINOMA STAGE UNSPECIFIED
     Route: 041
     Dates: start: 20120417, end: 20120417
  5. CARBOPLATIN [Suspect]
     Route: 041
     Dates: start: 20120515, end: 20120515
  6. VINORELBINE TARTRATE [Suspect]
     Route: 041
     Dates: start: 20120424, end: 20120424

REACTIONS (3)
  - CYSTITIS HAEMORRHAGIC [None]
  - URINARY RETENTION [None]
  - FEBRILE NEUTROPENIA [None]
